FAERS Safety Report 7319993-8 (Version None)
Quarter: 2011Q1

REPORT INFORMATION
  Report Type: 
  Country: None (occurrence: None)
  Receive Date: 20110214
  Receipt Date: 20110208
  Transmission Date: 20110831
  Serious: Yes (Hospitalization)
  Sender: FDA-Public Use
  Company Number: A0912471A

PATIENT
  Age: 69 Year
  Sex: Female

DRUGS (4)
  1. METHYLCELLULOSE (METHYLCELLULOSE) (FORMULATION UNKNOWN) [Suspect]
     Dosage: ORAL
     Route: 048
  2. ANTIHYPERCHOLESTEROLAEMIC [Concomitant]
  3. ANTIHYPERTENSIVE [Concomitant]
  4. LEVOTHYROXINE SODIUM [Concomitant]

REACTIONS (6)
  - CLOSTRIDIUM DIFFICILE COLITIS [None]
  - ABDOMINAL PAIN UPPER [None]
  - HEART RATE INCREASED [None]
  - FAECALOMA [None]
  - THROMBOSIS [None]
  - DIARRHOEA [None]
